FAERS Safety Report 9262810 (Version 2)
Quarter: 2013Q2

REPORT INFORMATION
  Report Type: Report from Study
  Country: GB (occurrence: GB)
  Receive Date: 20130430
  Receipt Date: 20130606
  Transmission Date: 20140414
  Serious: Yes (Other)
  Sender: FDA-Public Use
  Company Number: PHFR2013GB002444

PATIENT
  Sex: Female

DRUGS (3)
  1. INDACATEROL [Suspect]
     Indication: CHRONIC OBSTRUCTIVE PULMONARY DISEASE
     Dosage: 150 UG, UNK
     Dates: start: 20121004
  2. SALBUTAMOL [Concomitant]
     Dosage: 100 UG, UNK
  3. TIOTROPIUM [Concomitant]
     Dosage: 18 UG, DAILY

REACTIONS (2)
  - Hypertension [Not Recovered/Not Resolved]
  - Cough [Not Recovered/Not Resolved]
